FAERS Safety Report 17099144 (Version 1)
Quarter: 2019Q4

REPORT INFORMATION
  Report Type: Report from Study
  Country: AU (occurrence: AU)
  Receive Date: 20191202
  Receipt Date: 20191202
  Transmission Date: 20200122
  Serious: Yes (Other)
  Sender: FDA-Public Use
  Company Number: AU-EMD SERONO-9131037

PATIENT
  Age: 42 Year
  Sex: Male
  Weight: 96 kg

DRUGS (2)
  1. MAVENCLAD [Suspect]
     Active Substance: CLADRIBINE
     Indication: MULTIPLE SCLEROSIS
     Dosage: FIRST YEAR FIRST WEEK THERAPY: TWO DOSAGE FORM ON DAYS 1 TO 4 AND ONE DOSAGE FORM ON DAY 5.
     Route: 048
     Dates: start: 20181215
  2. MAVENCLAD [Suspect]
     Active Substance: CLADRIBINE
     Dosage: FIRST YEAR SECOND WEEK THERAPY.
     Route: 048
     Dates: start: 201901

REACTIONS (3)
  - Skin cancer [Unknown]
  - Herpes zoster [Unknown]
  - Weight increased [Unknown]

NARRATIVE: CASE EVENT DATE: 201907
